FAERS Safety Report 11794164 (Version 2)
Quarter: 2016Q1

REPORT INFORMATION
  Report Type: Spontaneous
  Country: US (occurrence: US)
  Receive Date: 20151202
  Receipt Date: 20160114
  Transmission Date: 20160525
  Serious: Yes (Other)
  Sender: FDA-Public Use
  Company Number: US-BAYER-2015-476942

PATIENT
  Age: 32 Year
  Sex: Female

DRUGS (1)
  1. MIRENA [Suspect]
     Active Substance: LEVONORGESTREL
     Indication: CONTRACEPTION
     Dosage: 20 MCG/24HR, CONT
     Route: 015
     Dates: start: 20150504, end: 20151203

REACTIONS (5)
  - Post procedural haemorrhage [None]
  - Device expulsion [None]
  - Menorrhagia [None]
  - Procedural pain [None]
  - Vaginal haemorrhage [None]

NARRATIVE: CASE EVENT DATE: 2015
